FAERS Safety Report 6040386-8 (Version None)
Quarter: 2009Q1

REPORT INFORMATION
  Report Type: 
  Country: None (occurrence: None)
  Receive Date: 20090116
  Receipt Date: 20080304
  Transmission Date: 20090719
  Serious: No
  Sender: FDA-Public Use
  Company Number: US-BRISTOL-MYERS SQUIBB COMPANY-14101653

PATIENT
  Age: 8 Year
  Sex: Male

DRUGS (2)
  1. ABILIFY [Suspect]
     Indication: BIPOLAR DISORDER
     Dosage: ABILIFY WAS DISCONTINUED AND RESTARTED 2MG.
  2. ABILIFY [Suspect]
     Indication: AFFECTIVE DISORDER
     Dosage: ABILIFY WAS DISCONTINUED AND RESTARTED 2MG.

REACTIONS (1)
  - GYNAECOMASTIA [None]
